FAERS Safety Report 18550883 (Version 1)
Quarter: 2020Q4

REPORT INFORMATION
  Report Type: Report from Study
  Country: US (occurrence: US)
  Receive Date: 20201126
  Receipt Date: 20201126
  Transmission Date: 20210114
  Serious: Yes (Hospitalization, Other)
  Sender: FDA-Public Use
  Company Number: US-SHIRE-US202002415

PATIENT
  Age: 4 Year
  Sex: Male

DRUGS (20)
  1. TEDUGLUTIDE [Suspect]
     Active Substance: TEDUGLUTIDE
     Indication: SHORT-BOWEL SYNDROME
     Dosage: 0.34 MILLIGRAM, 1X/DAY:QD
     Route: 058
     Dates: start: 20191024
  2. TEDUGLUTIDE [Suspect]
     Active Substance: TEDUGLUTIDE
     Indication: SHORT-BOWEL SYNDROME
     Dosage: 0.34 MILLIGRAM, 1X/DAY:QD
     Route: 058
     Dates: start: 20191024
  3. TEDUGLUTIDE [Suspect]
     Active Substance: TEDUGLUTIDE
     Dosage: 0.34 MILLIGRAM, 1X/DAY:QD
     Route: 058
     Dates: start: 20191123
  4. TEDUGLUTIDE [Suspect]
     Active Substance: TEDUGLUTIDE
     Dosage: 0.04 MILLIGRAM, 1X/DAY:QD
     Route: 058
     Dates: start: 20191024
  5. TEDUGLUTIDE [Suspect]
     Active Substance: TEDUGLUTIDE
     Dosage: 0.34 MILLIGRAM, 1X/DAY:QD
     Route: 058
     Dates: start: 20191123
  6. TEDUGLUTIDE [Suspect]
     Active Substance: TEDUGLUTIDE
     Dosage: 0.34 MILLIGRAM, 1X/DAY:QD
     Route: 058
     Dates: start: 20191111
  7. TEDUGLUTIDE [Suspect]
     Active Substance: TEDUGLUTIDE
     Dosage: 0.34 MILLIGRAM, 1X/DAY:QD
     Route: 058
     Dates: start: 20191111
  8. TEDUGLUTIDE [Suspect]
     Active Substance: TEDUGLUTIDE
     Dosage: 0.04 MILLIGRAM, 1X/DAY:QD
     Route: 058
     Dates: start: 20191024
  9. TEDUGLUTIDE [Suspect]
     Active Substance: TEDUGLUTIDE
     Dosage: 0.0300 UNK, UNK
     Route: 065
     Dates: start: 20191122
  10. TEDUGLUTIDE [Suspect]
     Active Substance: TEDUGLUTIDE
     Dosage: 0.0300 UNK, UNK
     Route: 065
     Dates: start: 20191122
  11. TEDUGLUTIDE [Suspect]
     Active Substance: TEDUGLUTIDE
     Dosage: 0.0300 UNK, UNK
     Route: 065
     Dates: start: 20191122
  12. TEDUGLUTIDE [Suspect]
     Active Substance: TEDUGLUTIDE
     Dosage: 0.04 MILLIGRAM, 1X/DAY:QD
     Route: 058
     Dates: start: 20191024
  13. TEDUGLUTIDE [Suspect]
     Active Substance: TEDUGLUTIDE
     Dosage: 0.0300 UNK, UNK
     Route: 065
     Dates: start: 20191122
  14. TEDUGLUTIDE [Suspect]
     Active Substance: TEDUGLUTIDE
     Dosage: 0.34 MILLIGRAM, 1X/DAY:QD
     Route: 058
     Dates: start: 20191111
  15. TEDUGLUTIDE [Suspect]
     Active Substance: TEDUGLUTIDE
     Dosage: 0.04 MILLIGRAM, 1X/DAY:QD
     Route: 058
     Dates: start: 20191024
  16. TEDUGLUTIDE [Suspect]
     Active Substance: TEDUGLUTIDE
     Indication: SHORT-BOWEL SYNDROME
     Dosage: 0.34 MILLIGRAM, 1X/DAY:QD
     Route: 058
     Dates: start: 20191024
  17. TEDUGLUTIDE [Suspect]
     Active Substance: TEDUGLUTIDE
     Indication: SHORT-BOWEL SYNDROME
     Dosage: 0.34 MILLIGRAM, 1X/DAY:QD
     Route: 058
     Dates: start: 20191024
  18. TEDUGLUTIDE [Suspect]
     Active Substance: TEDUGLUTIDE
     Dosage: 0.34 MILLIGRAM, 1X/DAY:QD
     Route: 058
     Dates: start: 20191123
  19. TEDUGLUTIDE [Suspect]
     Active Substance: TEDUGLUTIDE
     Dosage: 0.34 MILLIGRAM, 1X/DAY:QD
     Route: 058
     Dates: start: 20191111
  20. TEDUGLUTIDE [Suspect]
     Active Substance: TEDUGLUTIDE
     Dosage: 0.34 MILLIGRAM, 1X/DAY:QD
     Route: 058
     Dates: start: 20191123

REACTIONS (7)
  - Pyrexia [Unknown]
  - Seizure [Not Recovered/Not Resolved]
  - Device occlusion [Unknown]
  - Abdominal distension [Unknown]
  - Constipation [Not Recovered/Not Resolved]
  - Influenza [Unknown]
  - Erythema [Unknown]

NARRATIVE: CASE EVENT DATE: 20200301
